FAERS Safety Report 7275362-0 (Version None)
Quarter: 2011Q1

REPORT INFORMATION
  Report Type: 
  Country: None (occurrence: None)
  Receive Date: 20110131
  Receipt Date: 20110114
  Transmission Date: 20110831
  Serious: Yes (Death)
  Sender: FDA-Public Use
  Company Number: 1000018294

PATIENT
  Age: 64 Year
  Sex: Male

DRUGS (6)
  1. HYDROXYZINE [Suspect]
  2. CITALOPRAM (CITALOPRAM HYDROBROMIDE) [Suspect]
  3. TEMAZEPAM [Suspect]
  4. ZOLPIDEM [Suspect]
  5. TENORETIC 100 [Suspect]
  6. POTASSIUM CHLORIDE [Suspect]

REACTIONS (4)
  - COMPLETED SUICIDE [None]
  - RESPIRATORY ARREST [None]
  - INCORRECT DOSE ADMINISTERED [None]
  - CARDIAC ARREST [None]
